FAERS Safety Report 19473561 (Version 8)
Quarter: 2022Q3

REPORT INFORMATION
  Report Type: Report from Study
  Country: GB (occurrence: GB)
  Receive Date: 20210629
  Receipt Date: 20220912
  Transmission Date: 20221027
  Serious: Yes (Hospitalization, Other)
  Sender: FDA-Public Use
  Company Number: None

PATIENT
  Age: 62 Year
  Sex: Female

DRUGS (150)
  1. PACLITAXEL [Suspect]
     Active Substance: PACLITAXEL
     Indication: Breast cancer
     Dosage: 156 MILLIGRAM, QW
     Route: 042
     Dates: start: 20180202, end: 20180518
  2. TRASTUZUMAB [Suspect]
     Active Substance: TRASTUZUMAB
     Indication: Breast cancer
     Dosage: 600 MILLIGRAM
     Route: 058
     Dates: start: 20180202, end: 20180827
  3. LETROZOLE [Suspect]
     Active Substance: LETROZOLE
     Indication: Breast cancer
     Dosage: 2.5 MILLIGRAM, QD
     Route: 048
     Dates: start: 20180119, end: 20180126
  4. LETROZOLE [Suspect]
     Active Substance: LETROZOLE
     Dosage: 2.5 MILLIGRAM, QD
     Route: 048
     Dates: start: 20180525, end: 20181011
  5. ADO-TRASTUZUMAB EMTANSINE [Suspect]
     Active Substance: ADO-TRASTUZUMAB EMTANSINE
     Indication: Breast cancer
     Dosage: 420 MILLIGRAM, Q3W
     Route: 042
     Dates: start: 20181019, end: 20190927
  6. FEMARA [Suspect]
     Active Substance: LETROZOLE
     Indication: Breast cancer
     Dosage: 2.5 MILLIGRAM, QD
     Route: 048
     Dates: start: 20180119, end: 20180126
  7. FEMARA [Suspect]
     Active Substance: LETROZOLE
     Dosage: 2.5 MILLIGRAM, QD
     Route: 048
     Dates: start: 20180525, end: 20181011
  8. CALCIUM CARBONATE\CHOLECALCIFEROL [Concomitant]
     Active Substance: CALCIUM CARBONATE\CHOLECALCIFEROL
     Indication: Product used for unknown indication
     Dosage: 2 DOSAGE FORM, BID
     Route: 048
     Dates: start: 20140127
  9. CALCIUM CARBONATE\CHOLECALCIFEROL [Concomitant]
     Active Substance: CALCIUM CARBONATE\CHOLECALCIFEROL
     Dosage: UNK
     Route: 065
  10. AMOXICILLIN [Concomitant]
     Active Substance: AMOXICILLIN
     Indication: Product used for unknown indication
     Dosage: 1 GRAM, QD
     Route: 042
     Dates: start: 20190911, end: 20190915
  11. AMOXICILLIN\CLAVULANATE POTASSIUM [Concomitant]
     Active Substance: AMOXICILLIN\CLAVULANATE POTASSIUM
     Dosage: 625 MILLIGRAM, TID, 0.33 DAY
     Route: 048
     Dates: start: 20190915, end: 20190916
  12. BENDROFLUMETHIAZIDE [Concomitant]
     Active Substance: BENDROFLUMETHIAZIDE
     Dosage: 2.5 MILLIGRAM, QD
     Route: 048
     Dates: start: 20030114
  13. BENDROFLUMETHIAZIDE [Concomitant]
     Active Substance: BENDROFLUMETHIAZIDE
     Dosage: 2.5 MILLIGRAM, QD
     Route: 048
     Dates: start: 20190908
  14. BENZYDAMINE [Concomitant]
     Active Substance: BENZYDAMINE
     Indication: Product used for unknown indication
     Dosage: 5 MILLILITER, (MOUTHWASH)
     Route: 065
     Dates: start: 20180414
  15. BENZYDAMINE [Concomitant]
     Active Substance: BENZYDAMINE
     Dosage: UNK
     Route: 065
  16. CARBOXYMETHYLCELLULOSE SODIUM [Concomitant]
     Active Substance: CARBOXYMETHYLCELLULOSE SODIUM
     Dosage: UNK
     Route: 061
     Dates: start: 20181220, end: 20190116
  17. CARBOXYMETHYLCELLULOSE SODIUM [Concomitant]
     Active Substance: CARBOXYMETHYLCELLULOSE SODIUM
     Dosage: UNK
     Route: 065
  18. CARBOXYMETHYLCELLULOSE SODIUM [Concomitant]
     Active Substance: CARBOXYMETHYLCELLULOSE SODIUM
     Dosage: UNK
     Route: 065
  19. CETIRIZINE [Concomitant]
     Active Substance: CETIRIZINE HYDROCHLORIDE
     Indication: Product used for unknown indication
     Dosage: 10 MICROGRAM
     Route: 048
     Dates: start: 20080430
  20. CETIRIZINE [Concomitant]
     Active Substance: CETIRIZINE HYDROCHLORIDE
     Dosage: UNK
     Route: 065
  21. CETIRIZINE [Concomitant]
     Active Substance: CETIRIZINE HYDROCHLORIDE
     Dosage: UNK
     Route: 065
  22. CHLORHEXIDINE [Concomitant]
     Active Substance: CHLORHEXIDINE
     Indication: Product used for unknown indication
     Dosage: 10 MILLILITER, PRN
     Route: 065
     Dates: start: 20181019
  23. CHLORHEXIDINE [Concomitant]
     Active Substance: CHLORHEXIDINE
     Dosage: UNK
     Route: 065
  24. CHLORPHENIRAMINE MALEATE [Concomitant]
     Active Substance: CHLORPHENIRAMINE MALEATE
     Indication: Product used for unknown indication
     Dosage: 4 MILLIGRAM, QD
     Route: 048
     Dates: start: 20190909, end: 20190915
  25. CHLORPHENIRAMINE MALEATE [Concomitant]
     Active Substance: CHLORPHENIRAMINE MALEATE
     Dosage: 4 MILLIGRAM (TAKEN PRIOR TO STUDYTAKEN PRIOR TO STUDY)
     Route: 042
     Dates: start: 20180202
  26. CIPROFLOXACIN [Concomitant]
     Active Substance: CIPROFLOXACIN
     Indication: Product used for unknown indication
     Dosage: 500 MILLIGRAM, BID
     Route: 048
     Dates: start: 201910, end: 20191009
  27. CLARITHROMYCIN [Concomitant]
     Active Substance: CLARITHROMYCIN
     Dosage: 500 MILLIGRAM, BID
     Route: 048
     Dates: start: 20190717, end: 20190724
  28. CLOTRIMAZOLE [Concomitant]
     Active Substance: CLOTRIMAZOLE
     Indication: Product used for unknown indication
     Dosage: UNK
     Route: 061
     Dates: start: 20180125
  29. CLOTRIMAZOLE [Concomitant]
     Active Substance: CLOTRIMAZOLE
     Dosage: UNK
     Route: 065
  30. COCODAMOL [Concomitant]
     Active Substance: ACETAMINOPHEN\CODEINE PHOSPHATE
     Dosage: 1 DOSAGE FORM 30/500 MG FORM STRENGTH
     Route: 065
     Dates: start: 20030104, end: 20180225
  31. COCODAMOL [Concomitant]
     Active Substance: ACETAMINOPHEN\CODEINE PHOSPHATE
     Dosage: 1 DOSAGE FORM
     Route: 065
     Dates: start: 20180302
  32. CHOLECALCIFEROL [Concomitant]
     Active Substance: CHOLECALCIFEROL
     Indication: Product used for unknown indication
     Dosage: 2 DOSAGE FORM, BID
     Route: 048
     Dates: start: 20180920
  33. CHOLECALCIFEROL [Concomitant]
     Active Substance: CHOLECALCIFEROL
     Dosage: UNK UNK, BID
     Route: 048
     Dates: start: 20180926
  34. CYCLIZINE [Concomitant]
     Active Substance: CYCLIZINE
     Indication: Product used for unknown indication
     Dosage: 50 MILLIGRAM
     Route: 048
     Dates: start: 20181102
  35. CYCLIZINE [Concomitant]
     Active Substance: CYCLIZINE
     Dosage: UNK
     Route: 065
  36. DOXAZOSIN [Concomitant]
     Active Substance: DOXAZOSIN MESYLATE
     Indication: Product used for unknown indication
     Dosage: 2 MILLIGRAM, QD
     Route: 048
     Dates: start: 20040816
  37. DOXAZOSIN [Concomitant]
     Active Substance: DOXAZOSIN MESYLATE
     Dosage: 2 MILLIGRAM, QD
     Route: 048
     Dates: start: 20190908
  38. DOXYCYCLINE [Concomitant]
     Active Substance: DOXYCYCLINE
     Indication: Product used for unknown indication
     Dosage: 100 MILLIGRAM, BID
     Route: 048
     Dates: start: 20181113, end: 20181113
  39. DOXYCYCLINE [Concomitant]
     Active Substance: DOXYCYCLINE
     Dosage: 100 MILLIGRAM, QD
     Route: 048
     Dates: start: 20181114, end: 20181119
  40. EUMOVATE [Concomitant]
     Active Substance: CLOBETASONE BUTYRATE
     Indication: Skin abrasion
     Dosage: UNK UNK, QD
     Route: 061
     Dates: start: 20190403
  41. EUMOVATE [Concomitant]
     Active Substance: CLOBETASONE BUTYRATE
     Indication: Pruritus
     Dosage: UNK
     Route: 065
  42. FEXOFENADINE HYDROCHLORIDE [Concomitant]
     Active Substance: FEXOFENADINE HYDROCHLORIDE
     Indication: Pruritus
     Dosage: 180 MILLIGRAM, QD
     Route: 048
     Dates: start: 20190403, end: 20190403
  43. FEXOFENADINE HYDROCHLORIDE [Concomitant]
     Active Substance: FEXOFENADINE HYDROCHLORIDE
     Indication: Skin abrasion
     Dosage: 180 MILLIGRAM, QD
     Route: 048
     Dates: start: 201910, end: 20191119
  44. FLUCONAZOLE [Concomitant]
     Active Substance: FLUCONAZOLE
     Indication: Product used for unknown indication
     Dosage: 100 MILLIGRAM, QD
     Route: 048
     Dates: start: 20180125
  45. FLUCONAZOLE [Concomitant]
     Active Substance: FLUCONAZOLE
     Dosage: UNK
     Route: 065
  46. FOLIC ACID [Concomitant]
     Active Substance: FOLIC ACID
     Indication: Product used for unknown indication
     Dosage: 5 MILLIGRAM, QD
     Route: 048
     Dates: start: 20030207
  47. FOLIC ACID [Concomitant]
     Active Substance: FOLIC ACID
     Dosage: UNK
     Route: 065
  48. GENTAMICIN [Concomitant]
     Active Substance: GENTAMICIN
     Indication: Sepsis
     Dosage: 400 MILLIGRAM
     Route: 042
     Dates: start: 20181119, end: 20181119
  49. GENTAMICIN [Concomitant]
     Active Substance: GENTAMICIN
     Dosage: 400 MILLIGRAM
     Route: 042
     Dates: start: 20190526, end: 20190526
  50. GENTAMICIN [Concomitant]
     Active Substance: GENTAMICIN
     Dosage: 400 MILLIGRAM
     Route: 042
     Dates: start: 20190528, end: 20190528
  51. GENTAMICIN [Concomitant]
     Active Substance: GENTAMICIN
     Dosage: 400 MILLIGRAM
     Route: 042
     Dates: start: 20190911, end: 20190911
  52. GENTAMICIN [Concomitant]
     Active Substance: GENTAMICIN
     Dosage: 400 MILLIGRAM
     Route: 042
     Dates: start: 20190913, end: 20190913
  53. DEXTROSE [Concomitant]
     Active Substance: DEXTROSE
     Indication: Gastrointestinal haemorrhage
     Dosage: 1000 MILLILITER
     Route: 042
     Dates: start: 20190525, end: 20190525
  54. DEXTROSE [Concomitant]
     Active Substance: DEXTROSE
     Indication: Stoma site haemorrhage
     Dosage: UNK
     Route: 065
  55. DEXTROSE [Concomitant]
     Active Substance: DEXTROSE
     Dosage: 500 MILLILITER 0.18NA CL 4 PERCENT GLUCOSE  START DATE 23-MAY-2019
     Route: 042
     Dates: end: 20190523
  56. HEPARIN [Concomitant]
     Active Substance: HEPARIN SODIUM
     Indication: Prophylaxis
     Dosage: 5 MILLILITER
     Route: 042
     Dates: start: 20190502, end: 20191106
  57. HYDROCORTISONE [Concomitant]
     Active Substance: HYDROCORTISONE
     Indication: Product used for unknown indication
     Dosage: UNK UNK, PRN
     Route: 061
     Dates: start: 20180605
  58. HYDROCORTISONE [Concomitant]
     Active Substance: HYDROCORTISONE
     Dosage: UNK
     Route: 065
  59. HYDROCORTISONE [Concomitant]
     Active Substance: HYDROCORTISONE
     Dosage: UNK
     Route: 065
  60. HYDROXOCOBALAMIN [Concomitant]
     Active Substance: HYDROXOCOBALAMIN
     Indication: Product used for unknown indication
     Dosage: 1 MILLIGRAM (1 MG/1 ML)
     Route: 030
     Dates: start: 20020115
  61. HYDROXOCOBALAMIN [Concomitant]
     Active Substance: HYDROXOCOBALAMIN
     Dosage: UNK
     Route: 065
  62. IRON [Concomitant]
     Active Substance: IRON
     Indication: Product used for unknown indication
     Dosage: 210 MILLIGRAM, QD, 0.33 DAY
     Route: 048
     Dates: start: 20190730
  63. IRON [Concomitant]
     Active Substance: IRON
     Dosage: UNK
     Route: 065
  64. METOCLOPRAMIDE [Concomitant]
     Active Substance: METOCLOPRAMIDE
     Indication: Product used for unknown indication
     Dosage: 10 MILLIGRAM TAKEN PRIOR TO STUDY
     Route: 048
     Dates: start: 20180202
  65. METOCLOPRAMIDE [Concomitant]
     Active Substance: METOCLOPRAMIDE
     Dosage: 500 MILLIGRAM
     Route: 048
     Dates: start: 20181119, end: 20181121
  66. METOCLOPRAMIDE [Concomitant]
     Active Substance: METOCLOPRAMIDE
     Dosage: 400 MILLIGRAM
     Route: 048
     Dates: start: 20181122, end: 20181123
  67. METOCLOPRAMIDE [Concomitant]
     Active Substance: METOCLOPRAMIDE
     Dosage: 10 MILLIGRAM
     Route: 048
     Dates: start: 20190909, end: 20190909
  68. METOCLOPRAMIDE [Concomitant]
     Active Substance: METOCLOPRAMIDE
     Dosage: 10 MILLIGRAM, PRN
     Route: 048
     Dates: start: 201910
  69. METRONIDAZOLE [Concomitant]
     Active Substance: METRONIDAZOLE
     Indication: Sepsis
     Dosage: 500 MILLIGRAM, QD
     Route: 042
     Dates: start: 20181119, end: 20181121
  70. METRONIDAZOLE [Concomitant]
     Active Substance: METRONIDAZOLE
     Dosage: 400 MILLIGRAM, QD
     Route: 065
     Dates: start: 20181122, end: 20181123
  71. METRONIDAZOLE [Concomitant]
     Active Substance: METRONIDAZOLE
     Dosage: 500 MILLIGRAM, QD
     Route: 042
     Dates: start: 20180911, end: 20180915
  72. METRONIDAZOLE [Concomitant]
     Active Substance: METRONIDAZOLE
     Dosage: 500 MILLIGRAM, QD
     Route: 042
     Dates: start: 20190526
  73. OMEPRAZOLE [Concomitant]
     Active Substance: OMEPRAZOLE
     Indication: Product used for unknown indication
     Dosage: 20 MILLIGRAM, QD
     Route: 048
     Dates: start: 20091014
  74. OMEPRAZOLE [Concomitant]
     Active Substance: OMEPRAZOLE
     Dosage: 40 MILLIGRAM, BID 0.5 DAY
     Route: 048
     Dates: start: 20191107, end: 20200205
  75. ONDANSETRON [Concomitant]
     Active Substance: ONDANSETRON
     Indication: Product used for unknown indication
     Dosage: 4 MILLIGRAM, PRN
     Route: 042
     Dates: start: 20181119, end: 20181122
  76. ONDANSETRON [Concomitant]
     Active Substance: ONDANSETRON
     Dosage: 4 MILLIGRAM, PRN
     Route: 048
     Dates: start: 20181216, end: 20190107
  77. ONDANSETRON [Concomitant]
     Active Substance: ONDANSETRON
     Dosage: 4 MILLIGRAM, PRN
     Route: 048
     Dates: start: 20190920, end: 20190920
  78. ONDANSETRON [Concomitant]
     Active Substance: ONDANSETRON
     Dosage: 4 MILLIGRAM, PRN
     Route: 048
     Dates: start: 20200214, end: 20200214
  79. ACETAMINOPHEN [Concomitant]
     Active Substance: ACETAMINOPHEN
     Indication: Oedema
     Dosage: 1 GRAM
     Route: 048
     Dates: start: 20180225, end: 20180301
  80. ACETAMINOPHEN [Concomitant]
     Active Substance: ACETAMINOPHEN
     Dosage: 1 GRAM
     Route: 048
     Dates: start: 20180916, end: 20181002
  81. ACETAMINOPHEN [Concomitant]
     Active Substance: ACETAMINOPHEN
     Dosage: 1 GRAM, PRN
     Route: 048
     Dates: start: 20181003
  82. ACETAMINOPHEN [Concomitant]
     Active Substance: ACETAMINOPHEN
     Dosage: 1 GRAM
     Route: 048
     Dates: start: 20181220, end: 20181220
  83. PENTASA [Concomitant]
     Active Substance: MESALAMINE
     Indication: Crohn^s disease
     Dosage: 1 DOSAGE FORM, QD SACHETS
     Route: 048
     Dates: start: 20131217, end: 20180730
  84. PENTASA [Concomitant]
     Active Substance: MESALAMINE
     Dosage: 4 GRAM, QD
     Route: 048
     Dates: start: 20180730
  85. CHLORPHENIRAMINE MALEATE [Concomitant]
     Active Substance: CHLORPHENIRAMINE MALEATE
     Indication: Product used for unknown indication
     Dosage: 4 MILLIGRAM
     Route: 048
     Dates: start: 20180125
  86. CHLORPHENIRAMINE MALEATE [Concomitant]
     Active Substance: CHLORPHENIRAMINE MALEATE
     Dosage: UNK
     Route: 065
  87. QUININE [Concomitant]
     Active Substance: QUININE
     Indication: Product used for unknown indication
     Dosage: 200 MILLIGRAM, QD
     Route: 048
     Dates: start: 20040219
  88. QUININE [Concomitant]
     Active Substance: QUININE
     Dosage: UNK
     Route: 065
  89. RANITIDINE [Concomitant]
     Active Substance: RANITIDINE
     Dosage: 300 MILLIGRAM, QD
     Route: 048
     Dates: start: 20180212
  90. RANITIDINE [Concomitant]
     Active Substance: RANITIDINE
     Dosage: 150 MILLIGRAM
     Route: 065
     Dates: start: 20181123, end: 20181123
  91. RANITIDINE [Concomitant]
     Active Substance: RANITIDINE
     Dosage: 300 MILLIGRAM, QD START DATE 12-FEB-2020
     Route: 048
  92. HUMAN RED BLOOD CELL [Concomitant]
     Active Substance: HUMAN RED BLOOD CELL
     Indication: Haemorrhage
     Dosage: UNK
     Route: 042
     Dates: start: 20190511, end: 20190511
  93. HUMAN RED BLOOD CELL [Concomitant]
     Active Substance: HUMAN RED BLOOD CELL
     Indication: Gastrointestinal haemorrhage
     Dosage: 3 UNIT
     Route: 042
     Dates: start: 20190523, end: 20190524
  94. HUMAN RED BLOOD CELL [Concomitant]
     Active Substance: HUMAN RED BLOOD CELL
     Indication: Stoma site haemorrhage
  95. SILVER NITRATE [Concomitant]
     Active Substance: SILVER NITRATE
     Indication: Haemorrhage
     Dosage: 1 DOSAGE FORM 1 UNIT
     Route: 061
     Dates: start: 20180329, end: 20180329
  96. SILVER NITRATE [Concomitant]
     Active Substance: SILVER NITRATE
     Dosage: UNK
     Route: 061
     Dates: start: 20190510, end: 20190510
  97. SILVER NITRATE [Concomitant]
     Active Substance: SILVER NITRATE
     Dosage: UNK
     Route: 061
     Dates: start: 20190522, end: 20190522
  98. SILVER NITRATE [Concomitant]
     Active Substance: SILVER NITRATE
     Dosage: UNK
     Route: 061
     Dates: start: 20190527, end: 20190527
  99. SILVER NITRATE [Concomitant]
     Active Substance: SILVER NITRATE
     Dosage: UNK
     Route: 061
     Dates: start: 20190730, end: 20190730
  100. SODIUM CHLORIDE [Concomitant]
     Active Substance: SODIUM CHLORIDE
     Indication: Gastrointestinal haemorrhage
     Dosage: 500 MILLILITER
     Route: 042
     Dates: start: 20181122, end: 20181123
  101. SODIUM CHLORIDE [Concomitant]
     Active Substance: SODIUM CHLORIDE
     Dosage: 500 MILLILITER
     Route: 042
     Dates: start: 20181123, end: 20181123
  102. SODIUM CHLORIDE [Concomitant]
     Active Substance: SODIUM CHLORIDE
     Dosage: 500 MILLILITER
     Route: 042
     Dates: start: 20190522, end: 20190522
  103. SODIUM CHLORIDE [Concomitant]
     Active Substance: SODIUM CHLORIDE
     Dosage: 500 MILLILITER
     Route: 042
     Dates: start: 20190523, end: 20190523
  104. SUGAMMADEX [Concomitant]
     Active Substance: SUGAMMADEX
     Indication: Product used for unknown indication
     Dosage: 200 MILLIGRAM
     Route: 042
     Dates: start: 20181220, end: 20181220
  105. SUGAMMADEX [Concomitant]
     Active Substance: SUGAMMADEX
     Dosage: 200 MILLIGRAM
     Route: 065
     Dates: start: 20181220, end: 20181220
  106. TEICOPLANIN [Concomitant]
     Active Substance: TEICOPLANIN
     Dosage: 400 MILLIGRAM
     Route: 065
     Dates: start: 20181220, end: 20181224
  107. TEICOPLANIN [Concomitant]
     Active Substance: TEICOPLANIN
     Dosage: UNK
     Route: 065
  108. TERBUTALINE [Concomitant]
     Active Substance: TERBUTALINE
     Indication: Product used for unknown indication
     Dosage: 200 MICROGRAM, QD
     Route: 055
     Dates: start: 20030108
  109. TERBUTALINE [Concomitant]
     Active Substance: TERBUTALINE
     Dosage: UNK
     Route: 065
  110. TOLNAFTATE [Concomitant]
     Active Substance: TOLNAFTATE
     Dosage: UNK
     Route: 061
     Dates: start: 20181220, end: 20190116
  111. TOLNAFTATE [Concomitant]
     Active Substance: TOLNAFTATE
     Dosage: UNK
     Route: 065
  112. TRANEXAMIC ACID [Concomitant]
     Active Substance: TRANEXAMIC ACID
     Indication: Product used for unknown indication
     Dosage: 1 GRAM, TID
     Route: 048
     Dates: start: 20190804, end: 20190806
  113. TRANEXAMIC ACID [Concomitant]
     Active Substance: TRANEXAMIC ACID
     Dosage: UNK
     Route: 065
  114. TRIMETHOPRIM [Concomitant]
     Active Substance: TRIMETHOPRIM
     Dosage: 200 MILLIGRAM, BID
     Route: 048
     Dates: start: 20190813, end: 20190815
  115. VANCOMYCIN [Concomitant]
     Active Substance: VANCOMYCIN
     Indication: Sepsis
     Dosage: 2000 MILLIGRAM
     Route: 042
     Dates: start: 20181119, end: 20181119
  116. VANCOMYCIN [Concomitant]
     Active Substance: VANCOMYCIN
     Dosage: 500 MILLIGRAM
     Route: 042
     Dates: start: 20181120, end: 20181122
  117. VANCOMYCIN [Concomitant]
     Active Substance: VANCOMYCIN
     Dosage: 2000 MILLIGRAM
     Route: 042
     Dates: start: 20190526, end: 20190526
  118. VANCOMYCIN [Concomitant]
     Active Substance: VANCOMYCIN
     Dosage: 500 MILLIGRAM, BID
     Route: 042
     Dates: start: 20190527
  119. ZOLEDRONIC ACID [Concomitant]
     Active Substance: ZOLEDRONIC ACID
     Indication: Metastases to bone
     Dosage: 4 MILLIGRAM
     Route: 042
     Dates: start: 20181019
  120. RANITIDINE [Concomitant]
     Active Substance: RANITIDINE
     Indication: Product used for unknown indication
     Dosage: 50 MILLIGRAM TAKEN PRIOR TO SYUDY
     Route: 042
     Dates: start: 20180202
  121. RANITIDINE [Concomitant]
     Active Substance: RANITIDINE
     Dosage: 150 MILLIGRAM
     Route: 042
     Dates: start: 20181123, end: 20181123
  122. Duoderm [Concomitant]
     Dosage: UNK
     Route: 061
     Dates: start: 20181220, end: 20190116
  123. SALINE [Concomitant]
     Active Substance: SODIUM CHLORIDE
     Indication: Stoma site haemorrhage
     Dosage: 500 MILLILITER
     Route: 042
     Dates: start: 20190522, end: 20190522
  124. DEXTROSE\SODIUM CHLORIDE [Concomitant]
     Active Substance: DEXTROSE\SODIUM CHLORIDE
     Indication: Stoma site haemorrhage
     Dosage: 500 MILLILITER, (0.18NA CL 4% GLUCOSE)
     Route: 042
     Dates: start: 20190523, end: 20190523
  125. CHLORPHENIRAMINE MALEATE [Concomitant]
     Active Substance: CHLORPHENIRAMINE MALEATE
     Dosage: 10 MILLIGRAM, (TAKEN PRIOR TO STUDY)
     Route: 042
     Dates: start: 20180202
  126. SODIUM CHLORIDE [Concomitant]
     Active Substance: SODIUM CHLORIDE
     Indication: Gastrointestinal haemorrhage
     Dosage: 500 MILLILITER
     Route: 042
     Dates: start: 20181122, end: 20181123
  127. SODIUM CHLORIDE [Concomitant]
     Active Substance: SODIUM CHLORIDE
     Indication: Stoma site haemorrhage
     Dosage: 500 MILLILITER
     Route: 042
     Dates: start: 20181123, end: 20181123
  128. SODIUM CHLORIDE [Concomitant]
     Active Substance: SODIUM CHLORIDE
     Dosage: UNK
     Route: 065
  129. SODIUM CHLORIDE [Concomitant]
     Active Substance: SODIUM CHLORIDE
     Dosage: 500 MILLILITER, QD
     Route: 042
     Dates: start: 20190522, end: 20190522
  130. SODIUM CHLORIDE [Concomitant]
     Active Substance: SODIUM CHLORIDE
     Dosage: 500 MILLILITER
     Route: 042
     Dates: start: 20190523, end: 20190523
  131. SODIUM CHLORIDE [Concomitant]
     Active Substance: SODIUM CHLORIDE
     Dosage: 500 MILLILITER
     Route: 042
     Dates: start: 20190525, end: 20190525
  132. SODIUM CHLORIDE [Concomitant]
     Active Substance: SODIUM CHLORIDE
     Dosage: 500 MILLILITER
     Route: 042
     Dates: start: 20191122, end: 20191123
  133. METRONIDAZOLE [Concomitant]
     Active Substance: METRONIDAZOLE
     Indication: Sepsis
     Dosage: 400 MILLIGRAM, Q3W
     Route: 048
     Dates: start: 20190911, end: 20190915
  134. METRONIDAZOLE [Concomitant]
     Active Substance: METRONIDAZOLE
     Dosage: 400 MILLIGRAM
     Route: 048
     Dates: start: 20190911, end: 20190915
  135. METRONIDAZOLE [Concomitant]
     Active Substance: METRONIDAZOLE
     Dosage: 400 MILLIGRAM
     Route: 048
     Dates: start: 20190916, end: 20190916
  136. METRONIDAZOLE [Concomitant]
     Active Substance: METRONIDAZOLE
     Dosage: 400 MILLIGRAM, QD
     Route: 048
     Dates: start: 20190918, end: 20190918
  137. METRONIDAZOLE [Concomitant]
     Active Substance: METRONIDAZOLE
     Dosage: 400 MILLIGRAM, Q3W
     Route: 048
     Dates: start: 201910, end: 20191009
  138. METRONIDAZOLE [Concomitant]
     Active Substance: METRONIDAZOLE
     Dosage: 400 MILLIGRAM
     Route: 048
     Dates: start: 201910, end: 20191009
  139. FERROUS FUMARATE [Concomitant]
     Active Substance: FERROUS FUMARATE
     Indication: Product used for unknown indication
     Dosage: 210 MILLIGRAM, TID, 0.33 DAY
     Route: 048
     Dates: start: 20190730
  140. CHIROCAINE [Concomitant]
     Active Substance: LEVOBUPIVACAINE HYDROCHLORIDE
     Indication: Product used for unknown indication
     Dosage: UNK
     Route: 065
  141. DEXAMETHASONE [Concomitant]
     Active Substance: DEXAMETHASONE
     Indication: Product used for unknown indication
     Dosage: 8 MILLIGRAM (TAKEN PRIOR TO STUDY)
     Route: 042
  142. POTASSIUM CHLORIDE [Concomitant]
     Active Substance: POTASSIUM CHLORIDE
     Indication: Stoma site haemorrhage
     Dosage: 1000 MILLILITER, 0.18 PERCENT NACL 4 PERCENT GLUCOSE + 20MML KCL START DATE 25-MAY-2019
     Route: 042
     Dates: end: 20190525
  143. POTASSIUM BICARBONATE\POTASSIUM CHLORIDE [Concomitant]
     Active Substance: POTASSIUM BICARBONATE\POTASSIUM CHLORIDE
     Indication: Product used for unknown indication
     Dosage: UNK
     Route: 065
  144. MINERAL OIL\PARAFFIN [Concomitant]
     Active Substance: MINERAL OIL\PARAFFIN
     Indication: Dry skin
     Dosage: UNK
     Route: 061
  145. NYSTATIN [Concomitant]
     Active Substance: NYSTATIN
     Dosage: UNK
     Route: 065
  146. LEVOBUPIVACAINE HYDROCHLORIDE [Concomitant]
     Active Substance: LEVOBUPIVACAINE HYDROCHLORIDE
     Dosage: UNK
     Route: 065
  147. GLUCOSE;POTASSIUM CHLORIDE;SODIUM CHLORIDE [Concomitant]
     Indication: Stoma site haemorrhage
     Dosage: 1000 MILLILITER,0.18% NACL 4% GLUCOSE + 20MML KCL
     Route: 065
     Dates: start: 20190525, end: 20190525
  148. RUPATADINE FUMARATE [Concomitant]
     Active Substance: RUPATADINE FUMARATE
     Indication: Product used for unknown indication
     Dosage: 210 MILLIGRAM, QD
     Route: 048
     Dates: start: 20190730
  149. AMLODIPINE [Concomitant]
     Active Substance: AMLODIPINE BESYLATE
     Indication: Breast cancer
     Dosage: 156 MILLIGRAM, QD
     Route: 065
     Dates: start: 20180202, end: 20180518
  150. DERMOLATE [Concomitant]
     Dosage: UNK, AS NEEDED
     Route: 065
     Dates: start: 20180605

REACTIONS (11)
  - Disease progression [Unknown]
  - Bone pain [Recovered/Resolved]
  - Cancer pain [Recovered/Resolved]
  - Pain in extremity [Unknown]
  - Vomiting [Recovered/Resolved]
  - Diarrhoea [Recovered/Resolved]
  - Mucosal inflammation [Recovered/Resolved]
  - Oedema peripheral [Recovered/Resolved]
  - C-reactive protein increased [Recovered/Resolved]
  - Wound [Recovered/Resolved]
  - Arthralgia [Recovered/Resolved]

NARRATIVE: CASE EVENT DATE: 20180225
